APPROVED DRUG PRODUCT: TRANEXAMIC ACID
Active Ingredient: TRANEXAMIC ACID
Strength: 650MG
Dosage Form/Route: TABLET;ORAL
Application: A218320 | Product #001 | TE Code: AB
Applicant: RUBICON RESEARCH LTD
Approved: Jun 11, 2024 | RLD: No | RS: No | Type: RX